FAERS Safety Report 7048814-6 (Version None)
Quarter: 2010Q4

REPORT INFORMATION
  Report Type: 
  Country: None (occurrence: None)
  Receive Date: 20101018
  Receipt Date: 20101012
  Transmission Date: 20110411
  Serious: Yes (Life-Threatening, Hospitalization, Disabling)
  Sender: FDA-Public Use
  Company Number: PHHY2010AT64843

PATIENT
  Age: 62 Year
  Sex: Female

DRUGS (9)
  1. LEPONEX [Suspect]
     Indication: SCHIZOPHRENIA
     Dosage: 300 MG, QD
     Dates: start: 19900101, end: 20091107
  2. LEPONEX [Suspect]
     Dosage: 150 MG, QD
     Dates: start: 20091123, end: 20091125
  3. MARCUMAR [Suspect]
     Dosage: 1 MG, QD
     Dates: start: 20091116
  4. RISPERDAL [Concomitant]
     Dosage: 4 MG, DAILY
     Dates: start: 20040101, end: 20091114
  5. SEROQUEL [Concomitant]
     Dosage: 600 MG, DAILY
     Dates: start: 20091115, end: 20091123
  6. GLADEM [Concomitant]
     Dosage: 50 MG
     Dates: start: 20030101
  7. DOMINAL [Concomitant]
     Dosage: 80 MG
     Dates: start: 20030101
  8. SOLIAN [Concomitant]
     Dosage: 400 MG
     Dates: start: 20091123
  9. ZYPREXA [Concomitant]
     Dosage: UNK
     Dates: start: 20091125

REACTIONS (9)
  - AGRANULOCYTOSIS [None]
  - BONE MARROW DISORDER [None]
  - CONCOMITANT DISEASE PROGRESSION [None]
  - MANIA [None]
  - NEUTROPENIA [None]
  - PULMONARY EMBOLISM [None]
  - SKIN HYPOPIGMENTATION [None]
  - SUBCUTANEOUS ABSCESS [None]
  - WHITE BLOOD CELL COUNT DECREASED [None]
